FAERS Safety Report 9899509 (Version 2)
Quarter: 2014Q1

REPORT INFORMATION
  Report Type: Spontaneous
  Country: IT (occurrence: IT)
  Receive Date: 20140214
  Receipt Date: 20140304
  Transmission Date: 20141002
  Serious: Yes (Hospitalization)
  Sender: FDA-Public Use
  Company Number: IT-SA-2014SA014944

PATIENT
  Age: 38 Year
  Sex: Female

DRUGS (1)
  1. FERLIXIT [Suspect]
     Indication: ANAEMIA
     Route: 042
     Dates: start: 20140114, end: 20140114

REACTIONS (3)
  - Oedema peripheral [Recovered/Resolved]
  - Urticaria [Recovering/Resolving]
  - Chest discomfort [Recovering/Resolving]
